FAERS Safety Report 8454000-5 (Version None)
Quarter: 2012Q2

REPORT INFORMATION
  Report Type: 
  Country: None (occurrence: None)
  Receive Date: 20120620
  Receipt Date: 20120607
  Transmission Date: 20120825
  Serious: Yes (Congenital Anomaly)
  Sender: FDA-Public Use
  Company Number: CA-MYLANLABS-2012S1011994

PATIENT

DRUGS (20)
  1. PANTOPRAZOLE [Suspect]
     Route: 064
  2. RANITIDINE [Suspect]
     Route: 064
  3. GLYCEROL 2.6% [Suspect]
     Route: 064
  4. HYDROXYZINE [Suspect]
     Route: 064
  5. ACETAMINOPHEN [Suspect]
     Route: 064
  6. CLOTRIMAZOLE [Suspect]
     Route: 064
  7. CODEINE [Suspect]
     Route: 064
  8. METOCLOPRAMIDE [Suspect]
     Indication: HYPEREMESIS GRAVIDARUM
     Dosage: 1.8-3.2 MG/H
     Route: 064
  9. HYDROMORPHONE HCL [Suspect]
     Indication: PAIN
     Route: 064
  10. GINGER [Suspect]
     Route: 064
  11. DOMPERIDONE [Suspect]
     Route: 064
  12. LACTULOSE [Suspect]
     Route: 064
  13. INDOMETHACIN [Suspect]
     Route: 064
  14. CITALOPRAM [Suspect]
     Route: 064
  15. SODIUM DIOCTYL SULFOSUCCINATE [Suspect]
     Route: 064
  16. METHYLPREDNISOLONE [Suspect]
     Route: 064
  17. ONDANSETRON [Suspect]
     Indication: HYPEREMESIS GRAVIDARUM
     Route: 064
  18. DIPHENHYDRAMINE HCL [Suspect]
     Indication: HYPEREMESIS GRAVIDARUM
     Route: 064
  19. OMEPRAZOLE [Suspect]
     Route: 064
  20. PREDNISONE TAB [Suspect]
     Route: 064

REACTIONS (2)
  - MATERNAL EXPOSURE DURING PREGNANCY [None]
  - KIDNEY MALFORMATION [None]
